FAERS Safety Report 10731563 (Version 1)
Quarter: 2015Q1

REPORT INFORMATION
  Report Type: Spontaneous
  Country: GB (occurrence: GB)
  Receive Date: 20150123
  Receipt Date: 20150123
  Transmission Date: 20150721
  Serious: No
  Sender: FDA-Public Use
  Company Number: GB-BRISTOL-MYERS SQUIBB COMPANY-BMS-2014-003639

PATIENT
  Sex: Female

DRUGS (2)
  1. N/A [Suspect]
     Active Substance: UNSPECIFIED INGREDIENT
  2. METFORMIN HYDROCHLORIDE. [Suspect]
     Active Substance: METFORMIN HYDROCHLORIDE
     Indication: TYPE 2 DIABETES MELLITUS
     Dosage: UNK
     Route: 065

REACTIONS (3)
  - No adverse event [None]
  - Drug ineffective [Unknown]
  - Adverse drug reaction [Unknown]
